FAERS Safety Report 17545769 (Version 1)
Quarter: 2020Q1

REPORT INFORMATION
  Report Type: Spontaneous
  Country: US (occurrence: US)
  Receive Date: 20200306
  Receipt Date: 20200306
  Transmission Date: 20200409
  Serious: No
  Sender: FDA-Public Use
  Company Number: None

PATIENT
  Age: 80 Year
  Sex: Female

DRUGS (1)
  1. GUAIFENESIN (GUAIFENESIN 100MG/5ML SYRUP) [Suspect]
     Active Substance: GUAIFENESIN
     Dosage: ?          OTHER STRENGTH:100MG/5ML;?
     Dates: start: 20190924

REACTIONS (2)
  - Rash [None]
  - Lip swelling [None]

NARRATIVE: CASE EVENT DATE: 20190924
